FAERS Safety Report 25246386 (Version 1)
Quarter: 2025Q2

REPORT INFORMATION
  Report Type: Spontaneous
  Country: GB (occurrence: GB)
  Receive Date: 20250428
  Receipt Date: 20250428
  Transmission Date: 20250716
  Serious: Yes (Other)
  Sender: B BRAUN
  Company Number: GB-B.Braun Medical Inc.-2175740

PATIENT

DRUGS (2)
  1. ACETAMINOPHEN [Suspect]
     Active Substance: ACETAMINOPHEN
  2. ISOMETHEPTENE MUCATE [Suspect]
     Active Substance: ISOMETHEPTENE MUCATE

REACTIONS (2)
  - Bradycardia [Recovered/Resolved]
  - Dizziness [Recovered/Resolved]
